FAERS Safety Report 5055508-5 (Version None)
Quarter: 2006Q3

REPORT INFORMATION
  Report Type: 
  Country: None (occurrence: None)
  Receive Date: 20060714
  Receipt Date: 20060706
  Transmission Date: 20061208
  Serious: Yes (Other)
  Sender: FDA-Public Use
  Company Number: 2006067283

PATIENT
  Sex: Female

DRUGS (2)
  1. VIRACEPT [Suspect]
     Indication: HIV TEST POSITIVE
     Dosage: 2500 MG, ORAL
     Route: 048
     Dates: start: 20060315, end: 20060706
  2. COMBIVIR [Suspect]
     Indication: HIV TEST POSITIVE
     Dosage: 2 TALBETS , ORAL
     Route: 048
     Dates: start: 20060315, end: 20060706

REACTIONS (1)
  - DRUG EXPOSURE DURING PREGNANCY [None]
